FAERS Safety Report 16025982 (Version 1)
Quarter: 2019Q1

REPORT INFORMATION
  Report Type: Spontaneous
  Country: JP (occurrence: JP)
  Receive Date: 20190302
  Receipt Date: 20190302
  Transmission Date: 20190418
  Serious: Yes (Life-Threatening, Hospitalization, Disabling, Other)
  Sender: FDA-Public Use
  Company Number: JP-MICRO LABS LIMITED-ML2019-00453

PATIENT
  Age: 28 Year
  Sex: Male

DRUGS (4)
  1. CLOTIAZEPAM [Suspect]
     Active Substance: CLOTIAZEPAM
     Dosage: 12 TABLETS OF 5 MG CLOTIAZEPAM
  2. DIPHENHYDRAMINE HYDROCHLORIDE. [Suspect]
     Active Substance: DIPHENHYDRAMINE HYDROCHLORIDE
     Dosage: 8 TABLETS OF 25 MG DIPHENHYDRAMINE
  3. INSULIN ASPART [Concomitant]
     Active Substance: INSULIN ASPART
     Indication: TYPE 2 DIABETES MELLITUS
     Dosage: 7-8 UNITS OF INSULIN ASPART IN THE MORNING, 6-8 UNITS OF INSULIN ASPART AT MIDDAY, AND 13-15 UNITS O
  4. INSULIN DEGLUDEC [Concomitant]
     Active Substance: INSULIN DEGLUDEC
     Indication: TYPE 2 DIABETES MELLITUS

REACTIONS (6)
  - Intentional overdose [Unknown]
  - Respiratory failure [Unknown]
  - Suicide attempt [Unknown]
  - Diabetic ketoacidosis [Unknown]
  - Apallic syndrome [Recovering/Resolving]
  - Brain injury [Unknown]
